FAERS Safety Report 9918321 (Version 2)
Quarter: 2014Q1

REPORT INFORMATION
  Report Type: Spontaneous
  Country: US (occurrence: US)
  Receive Date: 20140224
  Receipt Date: 20140324
  Transmission Date: 20141002
  Serious: Yes (Hospitalization)
  Sender: FDA-Public Use
  Company Number: US-BIOGENIDEC-2014BI014686

PATIENT
  Age: 44 Year
  Sex: Female

DRUGS (14)
  1. TYSABRI [Suspect]
     Indication: MULTIPLE SCLEROSIS
     Route: 042
     Dates: start: 20130321
  2. IMITREX [Concomitant]
  3. TOPAMAX [Concomitant]
  4. DEPAKOTE [Concomitant]
  5. TIZANIDINE [Concomitant]
  6. NAPROXEN [Concomitant]
  7. TRAZODONE [Concomitant]
  8. ATIVAN [Concomitant]
  9. PRISTIQ [Concomitant]
  10. BENADRYL [Concomitant]
  11. JUNEL FE [Concomitant]
  12. CLARITIN [Concomitant]
  13. NASONEX [Concomitant]
  14. PROAIR HFA [Concomitant]

REACTIONS (3)
  - Pulmonary embolism [Recovered/Resolved]
  - Sinusitis [Not Recovered/Not Resolved]
  - Nasopharyngitis [Recovered/Resolved]
